FAERS Safety Report 5191010-8 (Version None)
Quarter: 2006Q4

REPORT INFORMATION
  Report Type: 
  Country: None (occurrence: None)
  Receive Date: 20061214
  Receipt Date: 20061211
  Transmission Date: 20070319
  Serious: Yes (Hospitalization)
  Sender: FDA-Public Use
  Company Number: CAWYE539115NOV06

PATIENT
  Sex: Female

DRUGS (1)
  1. ALESSE [Suspect]
     Dosage: ORAL
     Route: 048

REACTIONS (4)
  - DEEP VEIN THROMBOSIS [None]
  - FALL [None]
  - PULMONARY EMBOLISM [None]
  - SPORTS INJURY [None]
